FAERS Safety Report 15327052 (Version 1)
Quarter: 2018Q3

REPORT INFORMATION
  Report Type: Spontaneous
  Country: FR (occurrence: FR)
  Receive Date: 20180828
  Receipt Date: 20180828
  Transmission Date: 20181010
  Serious: Yes (Hospitalization)
  Sender: FDA-Public Use
  Company Number: FR-PFIZER INC-2018337889

PATIENT
  Age: 34 Year
  Sex: Male
  Weight: 104 kg

DRUGS (6)
  1. METHOTREXATE MYLAN [Suspect]
     Active Substance: METHOTREXATE SODIUM
     Indication: ACUTE LYMPHOCYTIC LEUKAEMIA
     Dosage: 15 MG, WEEKLY
     Route: 024
     Dates: start: 20180329, end: 20180412
  2. VINCRISTINE TEVA [Suspect]
     Active Substance: VINCRISTINE
     Indication: ACUTE LYMPHOCYTIC LEUKAEMIA
     Dosage: 2 MG, WEEKLY
     Route: 042
     Dates: start: 20180329, end: 20180419
  3. DEPO?MEDROL [Suspect]
     Active Substance: METHYLPREDNISOLONE ACETATE
     Indication: ACUTE LYMPHOCYTIC LEUKAEMIA
     Dosage: 40 MG, WEEKLY
     Route: 024
     Dates: start: 20180329, end: 20180412
  4. CYTARABINE SANDOZ [Suspect]
     Active Substance: CYTARABINE
     Dosage: 6000 MG/M2, 1X/DAY
     Route: 042
     Dates: start: 20180427, end: 20180428
  5. METHOTREXATE MYLAN [Suspect]
     Active Substance: METHOTREXATE SODIUM
     Dosage: 1000 MG/M2, 1X/DAY
     Route: 042
     Dates: start: 20180426, end: 20180426
  6. CYTARABINE SANDOZ [Suspect]
     Active Substance: CYTARABINE
     Indication: ACUTE LYMPHOCYTIC LEUKAEMIA
     Dosage: 40 MG, WEEKLY
     Route: 024
     Dates: start: 20180329, end: 20180412

REACTIONS (5)
  - Aphasia [Recovered/Resolved]
  - Product use in unapproved indication [Unknown]
  - Headache [Recovered/Resolved]
  - Disturbance in attention [Recovered/Resolved]
  - Product use issue [Unknown]

NARRATIVE: CASE EVENT DATE: 20180429
